FAERS Safety Report 7790424-7 (Version None)
Quarter: 2011Q3

REPORT INFORMATION
  Report Type: 
  Country: None (occurrence: None)
  Receive Date: 20110930
  Receipt Date: 20110927
  Transmission Date: 20111222
  Serious: Yes (Other)
  Sender: FDA-Public Use
  Company Number: GB-PFIZER INC-GB-WYE-G06421110

PATIENT
  Age: 70 Year
  Sex: Male
  Weight: 73 kg

DRUGS (6)
  1. TRAZODONE HCL [Suspect]
     Indication: DEPRESSION
  2. MIRTAZAPINE [Suspect]
     Indication: ANXIETY
     Dosage: 45.0 MG, 1X/DAY
     Route: 048
     Dates: start: 20060601
  3. CLONAZEPAM [Concomitant]
     Route: 065
  4. MIRTAZAPINE [Suspect]
     Dosage: 30 MG, FREQUENCY UNKNOWN
     Route: 065
     Dates: end: 20060601
  5. TRAZODONE HCL [Suspect]
     Indication: ANXIETY
     Dosage: 37.5 MG, 1X/DAY
     Route: 065
     Dates: start: 20060201
  6. MIRTAZAPINE [Suspect]
     Indication: DEPRESSION
     Dosage: 15 MG,FREQUENCY UNKNOWN
     Route: 065

REACTIONS (4)
  - PARKINSONIAN GAIT [None]
  - COGWHEEL RIGIDITY [None]
  - MALAISE [None]
  - DRUG WITHDRAWAL SYNDROME [None]
